FAERS Safety Report 9464772 (Version 2)
Quarter: 2013Q3

REPORT INFORMATION
  Report Type: Spontaneous
  Country: US (occurrence: US)
  Receive Date: 20130819
  Receipt Date: 20130819
  Transmission Date: 20140515
  Serious: Yes (Hospitalization, Other)
  Sender: FDA-Public Use
  Company Number: PHEH2013US014940

PATIENT
  Age: 77 Year
  Sex: Male

DRUGS (15)
  1. EXELON PATCH [Suspect]
     Dosage: 4.6 MG, UNK
     Route: 062
  2. EXELON PATCH [Suspect]
     Dosage: 9.5 MG, UNK
     Route: 062
  3. ACIPHEX [Concomitant]
     Indication: GASTROOESOPHAGEAL REFLUX DISEASE
     Dosage: ONE A DAY
  4. MULTIVITAMIN [Concomitant]
     Indication: SUPPLEMENTATION THERAPY
     Dosage: ONE A DAY
  5. ASA [Concomitant]
     Dosage: ONE A DAY
  6. VIT. E [Concomitant]
     Indication: SUPPLEMENTATION THERAPY
     Dosage: UNK UKN, UNK
  7. VITAMIN B12 [Concomitant]
     Indication: SUPPLEMENTATION THERAPY
     Dosage: ONE A DAY
  8. VIT B6 [Concomitant]
     Indication: SUPPLEMENTATION THERAPY
     Dosage: UNK UKN, UNK
  9. COQ10 [Concomitant]
     Indication: SUPPLEMENTATION THERAPY
     Dosage: ONE A DAY
  10. BENICAR [Concomitant]
     Dosage: UNK UKN, PRN
  11. VIT B2 [Concomitant]
     Dosage: ONE A DAY
  12. KRILL OIL [Concomitant]
     Dosage: ONE A DAY
  13. MELATONIN [Concomitant]
     Dosage: ONE A DAY
  14. CALCIUM MAGNESIUM                  /00591201/ [Concomitant]
     Dosage: ONE A DAY
  15. PLAVIX [Concomitant]
     Indication: ANTIPLATELET THERAPY
     Dosage: UNK UKN, UNK

REACTIONS (14)
  - Transient ischaemic attack [Unknown]
  - Confusional state [Unknown]
  - Speech disorder [Unknown]
  - Headache [Unknown]
  - Transient global amnesia [Unknown]
  - Cerebral arteriosclerosis [Unknown]
  - Gastrooesophageal reflux disease [Unknown]
  - Panic attack [Unknown]
  - Deafness bilateral [Unknown]
  - Ataxia [Unknown]
  - Cervical myelopathy [Unknown]
  - Application site reaction [Unknown]
  - Application site erythema [Unknown]
  - Application site pruritus [Unknown]
